FAERS Safety Report 13958733 (Version 1)
Quarter: 2017Q3

REPORT INFORMATION
  Report Type: Spontaneous
  Country: US (occurrence: None)
  Receive Date: 20170911
  Receipt Date: 20170911
  Transmission Date: 20171128
  Serious: Yes (Hospitalization)
  Sender: FDA-Public Use
  Company Number: None

PATIENT
  Age: 59 Year
  Sex: Female

DRUGS (4)
  1. TOBRAMYCIN 300MG/5ML NEB AMNEAL [Suspect]
     Active Substance: TOBRAMYCIN
     Indication: BRONCHIECTASIS
     Dosage: DOSE - 1 VIAL-28DS ON, 28DS OFF, REPEAT?ROUTE - NEBULIZER BID
     Dates: start: 20170607
  2. AZITHROMYCIN ANHYDROUS. [Concomitant]
     Active Substance: AZITHROMYCIN ANHYDROUS
  3. MULTI-VIT [Concomitant]
     Active Substance: VITAMINS
  4. ALBUTEROL. [Concomitant]
     Active Substance: ALBUTEROL

REACTIONS (2)
  - Oophorectomy [None]
  - Drug dose omission [None]

NARRATIVE: CASE EVENT DATE: 20170811
